FAERS Safety Report 5023370-2 (Version None)
Quarter: 2006Q2

REPORT INFORMATION
  Report Type: 
  Country: None (occurrence: None)
  Receive Date: 20060612
  Receipt Date: 20060530
  Transmission Date: 20061013
  Serious: Yes (Hospitalization)
  Sender: FDA-Public Use
  Company Number: FR-JNJFOC-20060601611

PATIENT
  Age: 44 Year
  Sex: Male

DRUGS (3)
  1. CONTRAMAL [Suspect]
     Indication: DRUG USE FOR UNKNOWN INDICATION
     Route: 048
  2. BREXIN [Suspect]
     Indication: DRUG USE FOR UNKNOWN INDICATION
     Route: 048
  3. FORLAX [Concomitant]
     Route: 065

REACTIONS (1)
  - GASTRITIS [None]
